FAERS Safety Report 21645737 (Version 1)
Quarter: 2022Q4

REPORT INFORMATION
  Report Type: Spontaneous
  Country: RU (occurrence: RU)
  Receive Date: 20221126
  Receipt Date: 20221126
  Transmission Date: 20230113
  Serious: Yes (Hospitalization)
  Sender: FDA-Public Use
  Company Number: RU-JNJFOC-20221138467

PATIENT
  Age: 50 Year
  Sex: Female
  Weight: 68 kg

DRUGS (13)
  1. UPTRAVI [Suspect]
     Active Substance: SELEXIPAG
     Indication: Pulmonary hypertension
     Route: 048
  2. UPTRAVI [Suspect]
     Active Substance: SELEXIPAG
     Route: 048
  3. OPSUMIT [Suspect]
     Active Substance: MACITENTAN
     Indication: Pulmonary hypertension
     Route: 048
     Dates: start: 201911
  4. TRACLEER [Suspect]
     Active Substance: BOSENTAN
     Indication: Pulmonary hypertension
     Dosage: 250 MG/DAY
     Route: 048
     Dates: start: 201302
  5. RIOCIGUAT [Concomitant]
     Active Substance: RIOCIGUAT
  6. RIOCIGUAT [Concomitant]
     Active Substance: RIOCIGUAT
  7. TORSEMIDE [Concomitant]
     Active Substance: TORSEMIDE
  8. SPIRONOLACTONE [Concomitant]
     Active Substance: SPIRONOLACTONE
  9. WARFARIN [Concomitant]
     Active Substance: WARFARIN
     Dates: start: 201603
  10. WARFARIN [Concomitant]
     Active Substance: WARFARIN
  11. FERROUS SULFATE [Concomitant]
     Active Substance: FERROUS SULFATE
  12. AMLODIPINE [Concomitant]
     Active Substance: AMLODIPINE BESYLATE
  13. SILDENAFIL [Concomitant]
     Active Substance: SILDENAFIL
     Dates: start: 201302

REACTIONS (5)
  - Chest pain [Unknown]
  - Dyspnoea exertional [Unknown]
  - Pain in extremity [Recovered/Resolved]
  - Pain in jaw [Recovered/Resolved]
  - Peripheral swelling [Unknown]

NARRATIVE: CASE EVENT DATE: 20130101
